FAERS Safety Report 24224790 (Version 3)
Quarter: 2024Q3

REPORT INFORMATION
  Report Type: Spontaneous
  Country: GB (occurrence: GB)
  Receive Date: 20240819
  Receipt Date: 20240828
  Transmission Date: 20241016
  Serious: No
  Sender: NOVARTIS
  Company Number: GB-002147023-NVSC2024GB167566

PATIENT
  Age: 57 Year
  Sex: Female

DRUGS (2)
  1. LEQVIO [Suspect]
     Active Substance: INCLISIRAN SODIUM
     Indication: Product used for unknown indication
     Dosage: UNK, FIRST INJECTION
     Route: 065
     Dates: start: 20231108
  2. LEQVIO [Suspect]
     Active Substance: INCLISIRAN SODIUM
     Dosage: UNK, SECOND INJECTION
     Route: 065
     Dates: start: 20240228

REACTIONS (1)
  - Glycosylated haemoglobin increased [Unknown]
